FAERS Safety Report 5392889-7 (Version None)
Quarter: 2007Q3

REPORT INFORMATION
  Report Type: 
  Country: None (occurrence: None)
  Receive Date: 20070721
  Receipt Date: 20070711
  Transmission Date: 20080115
  Serious: Yes (Other)
  Sender: FDA-Public Use
  Company Number: GB-PFIZER INC-2007058215

PATIENT

DRUGS (2)
  1. LYRICA [Suspect]
     Indication: NEURALGIA
     Route: 048
  2. ALL OTHER THERAPEUTIC PRODUCTS [Interacting]

REACTIONS (4)
  - CONFUSIONAL STATE [None]
  - DEPERSONALISATION [None]
  - DRUG INTERACTION [None]
  - MENTAL DISORDER [None]
